FAERS Safety Report 7002926-1 (Version None)
Quarter: 2010Q3

REPORT INFORMATION
  Report Type: 
  Country: None (occurrence: None)
  Receive Date: 20100920
  Receipt Date: 20070918
  Transmission Date: 20110219
  Serious: Yes (Other)
  Sender: FDA-Public Use
  Company Number: US-ASTRAZENECA-2007UW16850

PATIENT
  Age: 20587 Day
  Sex: Male
  Weight: 163.3 kg

DRUGS (18)
  1. SEROQUEL [Suspect]
     Indication: BIPOLAR DISORDER
     Dosage: 50 MG P.O. Q 4 HOURS WITH A MAXIMUM OF 200 MG PER DAY, AS NEEDED
     Route: 048
     Dates: start: 20040401
  2. SEROQUEL [Suspect]
     Indication: SCHIZOAFFECTIVE DISORDER
     Dosage: 50 MG P.O. Q 4 HOURS WITH A MAXIMUM OF 200 MG PER DAY, AS NEEDED
     Route: 048
     Dates: start: 20040401
  3. SEROQUEL [Suspect]
     Indication: INSOMNIA
     Dosage: 50 MG P.O. Q 4 HOURS WITH A MAXIMUM OF 200 MG PER DAY, AS NEEDED
     Route: 048
     Dates: start: 20040401
  4. SEROQUEL [Suspect]
     Route: 048
     Dates: start: 20050518
  5. SEROQUEL [Suspect]
     Route: 048
     Dates: start: 20050518
  6. SEROQUEL [Suspect]
     Route: 048
     Dates: start: 20050518
  7. SEROQUEL [Suspect]
     Dosage: 100-250 MG
     Route: 048
     Dates: start: 20060211, end: 20070531
  8. SEROQUEL [Suspect]
     Dosage: 100-250 MG
     Route: 048
     Dates: start: 20060211, end: 20070531
  9. SEROQUEL [Suspect]
     Dosage: 100-250 MG
     Route: 048
     Dates: start: 20060211, end: 20070531
  10. ABILIFY [Concomitant]
     Dosage: 15-30 MG
     Dates: start: 20031013, end: 20070731
  11. HALDOL [Concomitant]
  12. THORAZINE [Concomitant]
  13. ZYPREXA [Concomitant]
  14. TEGRETOL [Concomitant]
     Dosage: 200MG - 1200MG
     Route: 048
     Dates: start: 19930101
  15. ASPIRIN [Concomitant]
     Route: 048
     Dates: start: 20040414
  16. TRILEPTAL [Concomitant]
     Dosage: 300 MG P.O. Q AM AND 450 MG P.O. QHS
     Route: 048
     Dates: start: 20040401
  17. LISINOPRIL [Concomitant]
     Dosage: 2.5 - 5 MG Q.D.
     Route: 048
     Dates: start: 19990507
  18. LASIX [Concomitant]
     Dosage: 40MG-120 MG
     Route: 048
     Dates: start: 19990507

REACTIONS (2)
  - DIABETES MELLITUS [None]
  - DIABETIC KETOACIDOSIS [None]
